FAERS Safety Report 8134896-7 (Version None)
Quarter: 2012Q1

REPORT INFORMATION
  Report Type: 
  Country: None (occurrence: None)
  Receive Date: 20120214
  Receipt Date: 20120203
  Transmission Date: 20120608
  Serious: Yes (Other)
  Sender: FDA-Public Use
  Company Number: US-JNJFOC-20120202751

PATIENT
  Sex: Female
  Weight: 63.05 kg

DRUGS (2)
  1. REMICADE [Suspect]
     Indication: RHEUMATOID ARTHRITIS
     Route: 042
     Dates: end: 20111130
  2. REMICADE [Suspect]
     Route: 042

REACTIONS (2)
  - MALAISE [None]
  - DIVERTICULITIS [None]
